FAERS Safety Report 5003307-2 (Version None)
Quarter: 2006Q2

REPORT INFORMATION
  Report Type: 
  Country: None (occurrence: None)
  Receive Date: 20060515
  Receipt Date: 20040608
  Transmission Date: 20061013
  Serious: Yes (Other)
  Sender: FDA-Public Use
  Company Number: 2003-01-2848

PATIENT
  Sex: Female

DRUGS (1)
  1. LOTRIMIN AF [Suspect]
     Dosage: TOPICAL
     Route: 061

REACTIONS (1)
  - HEPATIC ENZYME INCREASED [None]
